FAERS Safety Report 23838909 (Version 1)
Quarter: 2024Q2

REPORT INFORMATION
  Report Type: Spontaneous
  Country: US (occurrence: US)
  Receive Date: 20240509
  Receipt Date: 20240509
  Transmission Date: 20240716
  Serious: Yes (Other)
  Sender: FDA-Public Use
  Company Number: US-009507513-2405USA002058

PATIENT
  Sex: Female

DRUGS (2)
  1. KEYTRUDA [Suspect]
     Active Substance: PEMBROLIZUMAB
     Indication: Endometrial cancer
     Dosage: UNK, Q3W
  2. LENVATINIB MESYLATE [Suspect]
     Active Substance: LENVATINIB MESYLATE
     Indication: Endometrial cancer
     Dosage: UNK UNK, QD
     Route: 048
     Dates: end: 2024

REACTIONS (6)
  - Neuropathy peripheral [Recovering/Resolving]
  - Skin exfoliation [Unknown]
  - Blister [Unknown]
  - Dry skin [Unknown]
  - Movement disorder [Unknown]
  - Pain in extremity [Recovering/Resolving]
